FAERS Safety Report 18388655 (Version 1)
Quarter: 2020Q4

REPORT INFORMATION
  Report Type: Spontaneous
  Country: RU (occurrence: RU)
  Receive Date: 20201015
  Receipt Date: 20201015
  Transmission Date: 20210114
  Serious: Yes (Hospitalization, Other)
  Sender: FDA-Public Use
  Company Number: RU-ASTRAZENECA-2020SF32018

PATIENT
  Age: 57 Year
  Sex: Female

DRUGS (7)
  1. ESPIRO [Concomitant]
     Active Substance: EPLERENONE
     Dosage: 50 MG
  2. BETALOC ZOK [Suspect]
     Active Substance: METOPROLOL SUCCINATE
     Dosage: 100 MG 2 TIMES A DAY
     Route: 048
  3. VALSACOR [Concomitant]
     Active Substance: VALSARTAN
     Dosage: 40 MG 2 TIMES A DAY
  4. ATORVASTATIN [Concomitant]
     Active Substance: ATORVASTATIN
     Dosage: 80 MG
  5. OMEZ [Concomitant]
     Active Substance: OMEPRAZOLE
     Dosage: 20 MG
  6. CLEXANE [Concomitant]
     Active Substance: ENOXAPARIN SODIUM
     Dosage: 0.8 2 TIMES A DAY
     Route: 058
  7. BRILINTA [Suspect]
     Active Substance: TICAGRELOR
     Route: 048

REACTIONS (4)
  - Off label use [Unknown]
  - Vascular stent thrombosis [Unknown]
  - Therapy non-responder [Unknown]
  - Drug intolerance [Unknown]

NARRATIVE: CASE EVENT DATE: 20200926
